FAERS Safety Report 15882872 (Version 2)
Quarter: 2019Q1

REPORT INFORMATION
  Report Type: Spontaneous
  Country: US (occurrence: US)
  Receive Date: 20190129
  Receipt Date: 20190318
  Transmission Date: 20190417
  Serious: No
  Sender: FDA-Public Use
  Company Number: US-TEVA-2019-US-1006068

PATIENT
  Age: 57 Year
  Sex: Female
  Weight: 59.02 kg

DRUGS (9)
  1. CYMBALTA [Concomitant]
     Active Substance: DULOXETINE HYDROCHLORIDE
     Indication: JOINT SWELLING
     Dosage: 60 MILLIGRAM DAILY;
  2. ZOFRAN [Concomitant]
     Active Substance: ONDANSETRON HYDROCHLORIDE
     Indication: NAUSEA
     Dosage: 12 MILLIGRAM DAILY; PM
  3. KLONOPIN [Concomitant]
     Active Substance: CLONAZEPAM
     Dosage: 1.5 MILLIGRAM DAILY;
  4. AJOVY [Suspect]
     Active Substance: FREMANEZUMAB-VFRM
     Route: 058
     Dates: start: 201811
  5. RIZATRIPTAN. [Concomitant]
     Active Substance: RIZATRIPTAN
     Indication: MIGRAINE
     Dosage: 1 TABLET BY MOUTH AT ONSET, REPEAT IN 2 HOURS IF NEEDED (DOES NOT USE OFTEN)
     Route: 048
  6. BACLOFEN. [Concomitant]
     Active Substance: BACLOFEN
     Dosage: 30 MILLIGRAM DAILY;
  7. GABAPENTIN. [Concomitant]
     Active Substance: GABAPENTIN
     Dosage: 2700 MILLIGRAM DAILY;
  8. TOPAMAX [Concomitant]
     Active Substance: TOPIRAMATE
     Dosage: 200 MILLIGRAM DAILY;
  9. BENTYL [Concomitant]
     Active Substance: DICYCLOMINE HYDROCHLORIDE
     Indication: IRRITABLE BOWEL SYNDROME
     Dosage: 4 DOSAGE FORMS DAILY; PM

REACTIONS (18)
  - Pruritus [Unknown]
  - Cough [Unknown]
  - Skin exfoliation [Unknown]
  - Feeling cold [Unknown]
  - Asthenia [Unknown]
  - Skin burning sensation [Unknown]
  - Abdominal discomfort [Unknown]
  - Erythema [Unknown]
  - Eye pruritus [Unknown]
  - Scab [Not Recovered/Not Resolved]
  - Dry mouth [Unknown]
  - Nausea [Unknown]
  - Back pain [Not Recovered/Not Resolved]
  - Dysphagia [Unknown]
  - Eructation [Not Recovered/Not Resolved]
  - Malaise [Unknown]
  - Headache [Unknown]
  - Swelling face [Unknown]

NARRATIVE: CASE EVENT DATE: 201811
